FAERS Safety Report 14942542 (Version 6)
Quarter: 2021Q4

REPORT INFORMATION
  Report Type: Spontaneous
  Country: CA (occurrence: CA)
  Receive Date: 20180528
  Receipt Date: 20211027
  Transmission Date: 20220303
  Serious: Yes (Hospitalization, Disabling, Other)
  Sender: FDA-Public Use
  Company Number: CA-MLMSERVICE-20180508-1181231-1

PATIENT
  Age: 89 Year
  Sex: Female

DRUGS (14)
  1. ESCITALOPRAM [Suspect]
     Active Substance: ESCITALOPRAM OXALATE
     Indication: Product used for unknown indication
     Dosage: UNK
     Route: 065
  2. ASPIRIN [Suspect]
     Active Substance: ASPIRIN
     Indication: Cerebrovascular accident
     Dosage: UNK, ONCE A DAY
     Route: 065
  3. ASPIRIN [Suspect]
     Active Substance: ASPIRIN
     Indication: Prophylaxis
  4. ASPIRIN [Suspect]
     Active Substance: ASPIRIN
     Indication: Atrial fibrillation
  5. HEPARIN SODIUM [Suspect]
     Active Substance: HEPARIN SODIUM
     Indication: Thrombosis prophylaxis
     Dosage: 5000 INTERNATIONAL UNIT, TWO TIMES A DAY
     Route: 058
  6. HEPARIN SODIUM [Suspect]
     Active Substance: HEPARIN SODIUM
     Indication: Embolism venous
  7. RIVAROXABAN [Suspect]
     Active Substance: RIVAROXABAN
     Indication: Atrial fibrillation
     Dosage: 15 MILLIGRAM, ONCE A DAY
     Route: 065
  8. RIVAROXABAN [Suspect]
     Active Substance: RIVAROXABAN
     Indication: Cerebrovascular accident
  9. RIVAROXABAN [Suspect]
     Active Substance: RIVAROXABAN
     Indication: Prophylaxis
  10. BUPIVACAINE [Concomitant]
     Active Substance: BUPIVACAINE
     Indication: Product used for unknown indication
     Dosage: 1 MILLIGRAM PER MILLILITRE
     Route: 065
  11. BUPIVACAINE [Concomitant]
     Active Substance: BUPIVACAINE
     Indication: Product used for unknown indication
     Dosage: UNK
     Route: 065
  12. EPINEPHRINE [Concomitant]
     Active Substance: EPINEPHRINE
     Indication: Product used for unknown indication
     Dosage: UNK, A TEST DOSE OF 3 ML OF LIDOCAINE 2% WITH EPINEPHRINE 5 ?G/ML ()
     Route: 065
  13. HYDROMORPHONE [Concomitant]
     Active Substance: HYDROMORPHONE
     Indication: Product used for unknown indication
     Dosage: UNK, 10 ?G/ML WAS INITIATED DURING THE PROCEDURE AND MAINTAINED AT 6 ML/H, INFUSION
     Route: 065
  14. LIDOCAINE [Concomitant]
     Active Substance: LIDOCAINE
     Indication: Product used for unknown indication
     Dosage: 3 MILLILITER, A TEST DOSE OF 3 ML OF LIDOCAINE 2% WITH EPINEPHRINE 5 ?G/ML
     Route: 065

REACTIONS (10)
  - Extradural haematoma [Recovering/Resolving]
  - Platelet aggregation inhibition [Recovering/Resolving]
  - Haemorrhage [Recovering/Resolving]
  - Hypovolaemia [Recovering/Resolving]
  - Platelet count decreased [Recovering/Resolving]
  - Spinal cord compression [Recovering/Resolving]
  - Oedema [Recovering/Resolving]
  - Paralysis [Recovering/Resolving]
  - Hypotension [Recovering/Resolving]
  - Motor dysfunction [Recovering/Resolving]
